FAERS Safety Report 16538758 (Version 1)
Quarter: 2019Q3

REPORT INFORMATION
  Report Type: Spontaneous
  Country: GB (occurrence: GB)
  Receive Date: 20190708
  Receipt Date: 20190708
  Transmission Date: 20191004
  Serious: Yes (Other)
  Sender: FDA-Public Use
  Company Number: GB-TEVA-2019-GB-1072700

PATIENT
  Age: 69 Year
  Sex: Female
  Weight: 56.24 kg

DRUGS (9)
  1. CALCIUM [Concomitant]
     Active Substance: CALCIUM
     Indication: ILL-DEFINED DISORDER
  2. ALENDRONIC ACID [Suspect]
     Active Substance: ALENDRONIC ACID
     Route: 048
     Dates: start: 20190317, end: 20190324
  3. VITAMIN D [Concomitant]
     Active Substance: VITAMIN D NOS
     Indication: ILL-DEFINED DISORDER
  4. FLUOXETINE [Concomitant]
     Active Substance: FLUOXETINE HYDROCHLORIDE
     Indication: ILL-DEFINED DISORDER
  5. RISEDRONIC ACID [Suspect]
     Active Substance: RISEDRONIC ACID
     Route: 048
     Dates: end: 20190413
  6. QUODIXOR [Suspect]
     Active Substance: IBANDRONATE SODIUM
     Route: 048
     Dates: start: 20190601, end: 20190606
  7. PERINDOPRIL [Concomitant]
     Active Substance: PERINDOPRIL
     Indication: ILL-DEFINED DISORDER
  8. CETIRIZINE [Concomitant]
     Active Substance: CETIRIZINE HYDROCHLORIDE
     Indication: ILL-DEFINED DISORDER
  9. AMLODIPINE [Concomitant]
     Active Substance: AMLODIPINE BESYLATE
     Indication: ILL-DEFINED DISORDER

REACTIONS (15)
  - Arthralgia [Recovered/Resolved with Sequelae]
  - Pyrexia [Recovered/Resolved with Sequelae]
  - Dysstasia [Recovered/Resolved with Sequelae]
  - Chills [Recovered/Resolved with Sequelae]
  - Headache [Recovered/Resolved with Sequelae]
  - Fatigue [Recovered/Resolved with Sequelae]
  - Influenza like illness [Recovered/Resolved with Sequelae]
  - Hallucination [Recovered/Resolved with Sequelae]
  - Vomiting [Recovered/Resolved with Sequelae]
  - Diarrhoea [Recovered/Resolved with Sequelae]
  - Increased viscosity of upper respiratory secretion [Recovered/Resolved with Sequelae]
  - Toothache [Recovered/Resolved with Sequelae]
  - Nausea [Recovered/Resolved with Sequelae]
  - Insomnia [Recovered/Resolved with Sequelae]
  - Periorbital swelling [Recovered/Resolved with Sequelae]

NARRATIVE: CASE EVENT DATE: 20190603
